FAERS Safety Report 5274504-6 (Version None)
Quarter: 2007Q1

REPORT INFORMATION
  Report Type: 
  Country: None (occurrence: None)
  Receive Date: 20070323
  Receipt Date: 20070312
  Transmission Date: 20070707
  Serious: Yes (Other)
  Sender: FDA-Public Use
  Company Number: US-PFIZER INC-2007021332

PATIENT
  Sex: Female
  Weight: 45.4 kg

DRUGS (3)
  1. LYRICA [Suspect]
     Indication: DIABETIC NEUROPATHY
     Dates: start: 20070201, end: 20070311
  2. XANAX [Concomitant]
     Indication: ANXIETY
  3. ALL OTHER THERAPEUTIC PRODUCTS [Concomitant]
     Indication: DIABETIC NEUROPATHY

REACTIONS (6)
  - ANOREXIA [None]
  - DIARRHOEA [None]
  - DRUG INEFFECTIVE [None]
  - RASH [None]
  - SKIN HAEMORRHAGE [None]
  - WEIGHT DECREASED [None]
